FAERS Safety Report 5950021-2 (Version None)
Quarter: 2008Q4

REPORT INFORMATION
  Report Type: 
  Country: None (occurrence: None)
  Receive Date: 20081111
  Receipt Date: 20080331
  Transmission Date: 20090506
  Serious: No
  Sender: FDA-Public Use
  Company Number: US-BRISTOL-MYERS SQUIBB COMPANY-14109029

PATIENT
  Age: 48 Year
  Sex: Female

DRUGS (2)
  1. SUSTIVA [Suspect]
     Indication: ACQUIRED IMMUNODEFICIENCY SYNDROME
     Dosage: TAKEN INTERMITTENTLY  FOR SEVERAL YEARS
     Route: 048
     Dates: start: 20071001
  2. TRUVADA [Concomitant]

REACTIONS (1)
  - OESOPHAGEAL CANDIDIASIS [None]
